FAERS Safety Report 8344705-9 (Version None)
Quarter: 2012Q2

REPORT INFORMATION
  Report Type: 
  Country: None (occurrence: None)
  Receive Date: 20120508
  Receipt Date: 20120424
  Transmission Date: 20120825
  Serious: Yes (Other)
  Sender: FDA-Public Use
  Company Number: VE-ROCHE-1064790

PATIENT
  Sex: Female

DRUGS (2)
  1. XOLAIR [Suspect]
     Indication: LUNG INFECTION
  2. XOLAIR [Suspect]
     Indication: ASTHMA
     Dosage: BEGINING ONCE A MONTH, LATER TWICE A MONTH BASED ON EVALUATION
     Dates: start: 20100101, end: 20110101

REACTIONS (3)
  - ALOPECIA [None]
  - WEIGHT DECREASED [None]
  - NO THERAPEUTIC RESPONSE [None]
